FAERS Safety Report 6692857-9 (Version None)
Quarter: 2010Q2

REPORT INFORMATION
  Report Type: 
  Country: None (occurrence: None)
  Receive Date: 20100419
  Receipt Date: 20100413
  Transmission Date: 20101027
  Serious: Yes (Hospitalization)
  Sender: FDA-Public Use
  Company Number: GRT 2010-12607

PATIENT
  Age: 53 Year
  Sex: Male

DRUGS (8)
  1. LIDOCAINE HCL [Suspect]
     Indication: CONSTIPATION
     Dosage: ORAL
     Route: 048
     Dates: start: 20100202
  2. OXYCODONE [Suspect]
     Indication: ANALGESIC THERAPY
     Dosage: 37.5MG, 1 DAY
  3. SUNITINIB MALATE [Suspect]
     Indication: RENAL CELL CARCINOMA
     Dosage: 50 MG
     Dates: start: 20090924, end: 20091201
  4. SUNITINIB MALATE [Suspect]
     Indication: RENAL CELL CARCINOMA
     Dosage: 37.5MG
     Dates: start: 20091214
  5. GLICLAZIDE [Concomitant]
  6. CRESTOR [Concomitant]
  7. ACETYLSALICYLATE LYSINE [Concomitant]
  8. ESOMEPRAZOLE MAGNESIUM [Concomitant]

REACTIONS (2)
  - CONSTIPATION [None]
  - FLANK PAIN [None]
